FAERS Safety Report 18244053 (Version 1)
Quarter: 2020Q3

REPORT INFORMATION
  Report Type: Spontaneous
  Country: US (occurrence: US)
  Receive Date: 20200908
  Receipt Date: 20200908
  Transmission Date: 20201103
  Serious: No
  Sender: FDA-Public Use
  Company Number: US-PFIZER INC-2020346229

PATIENT
  Age: 55 Year
  Sex: Female

DRUGS (1)
  1. XELJANZ [Suspect]
     Active Substance: TOFACITINIB CITRATE
     Indication: RHEUMATOID ARTHRITIS
     Dosage: 5 MG, 2X/DAY
     Route: 048
     Dates: start: 20200807, end: 20200814

REACTIONS (4)
  - Dyspnoea [Unknown]
  - Abdominal rigidity [Unknown]
  - Oropharyngeal pain [Unknown]
  - Somnolence [Unknown]

NARRATIVE: CASE EVENT DATE: 202008
